FAERS Safety Report 8088745-6 (Version None)
Quarter: 2012Q1

REPORT INFORMATION
  Report Type: 
  Country: None (occurrence: None)
  Receive Date: 20120128
  Receipt Date: 20110608
  Transmission Date: 20120608
  Serious: No
  Sender: FDA-Public Use
  Company Number: US-ABBOTT-11P-163-0731022-00

PATIENT
  Age: 60 Year
  Sex: Male

DRUGS (5)
  1. BENICAR [Concomitant]
     Indication: HYPERTENSION
     Dosage: 20-12.5MG DAILY
  2. ENTOCORT EC [Concomitant]
     Indication: CROHN'S DISEASE
  3. HUMIRA [Suspect]
     Indication: CROHN'S DISEASE
     Dates: start: 20110509
  4. CANASA [Concomitant]
     Indication: CROHN'S DISEASE
  5. ASACOL [Concomitant]
     Indication: CROHN'S DISEASE
     Dosage: 2 TABS, 3 TIMES DAILY AS NEEDED

REACTIONS (5)
  - INJECTION SITE PAPULE [None]
  - INJECTION SITE ERYTHEMA [None]
  - INJECTION SITE REACTION [None]
  - INJECTION SITE INDURATION [None]
  - INJECTION SITE WARMTH [None]
